FAERS Safety Report 17745470 (Version 1)
Quarter: 2020Q2

REPORT INFORMATION
  Report Type: Report from Study
  Country: None (occurrence: US)
  Receive Date: 20200505
  Receipt Date: 20200505
  Transmission Date: 20200714
  Serious: Yes (Hospitalization)
  Sender: FDA-Public Use
  Company Number: US-ABBVIE-18K-163-3114884-00

PATIENT
  Age: 75 Year
  Sex: Male

DRUGS (2)
  1. IMBRUVICA [Suspect]
     Active Substance: IBRUTINIB
     Indication: CHRONIC LYMPHOCYTIC LEUKAEMIA
     Dosage: 420 MG, QD
     Route: 048
     Dates: start: 20180411, end: 20180818
  2. IMBRUVICA [Suspect]
     Active Substance: IBRUTINIB
     Dosage: 420 MG, QD
     Route: 048
     Dates: start: 20180828

REACTIONS (9)
  - Weight decreased [Unknown]
  - Blood glucose abnormal [Unknown]
  - White blood cell count increased [Recovering/Resolving]
  - Polyp [Unknown]
  - Abdominal discomfort [Recovered/Resolved]
  - Decreased activity [Unknown]
  - Gallbladder operation [Recovered/Resolved]
  - Dry skin [Recovered/Resolved]
  - Frequent bowel movements [Recovered/Resolved]

NARRATIVE: CASE EVENT DATE: 20180819
